FAERS Safety Report 6609220-9 (Version None)
Quarter: 2010Q1

REPORT INFORMATION
  Report Type: 
  Country: None (occurrence: None)
  Receive Date: 20100224
  Receipt Date: 20100209
  Transmission Date: 20100710
  Serious: Yes (Hospitalization, Other)
  Sender: FDA-Public Use
  Company Number: 2010S1001113

PATIENT
  Age: 58 Year
  Sex: Male
  Weight: 90.7194 kg

DRUGS (6)
  1. PHOSPHOSODA         FLAVOR NOT SPECIFIED [Suspect]
     Indication: SURGERY
     Dosage: 90 ML; TOTAL; PO
     Route: 048
     Dates: start: 20071022, end: 20071022
  2. CITRATE OF MAGNESIUM [Concomitant]
  3. DULCOLAX [Concomitant]
  4. DIOVAN [Concomitant]
  5. COREG [Concomitant]
  6. LOTREL [Concomitant]

REACTIONS (9)
  - DEHYDRATION [None]
  - DIALYSIS [None]
  - ELECTROLYTE IMBALANCE [None]
  - INTERVERTEBRAL DISC PROTRUSION [None]
  - MUSCLE SPASMS [None]
  - PAIN IN EXTREMITY [None]
  - POSTOPERATIVE ILEUS [None]
  - RENAL FAILURE ACUTE [None]
  - RENAL FAILURE CHRONIC [None]
